FAERS Safety Report 7625947-4 (Version None)
Quarter: 2011Q3

REPORT INFORMATION
  Report Type: 
  Country: None (occurrence: None)
  Receive Date: 20110721
  Receipt Date: 20110721
  Transmission Date: 20111222
  Serious: Yes (Hospitalization)
  Sender: FDA-Public Use
  Company Number: None

PATIENT
  Age: 62 Year
  Sex: Male
  Weight: 111 kg

DRUGS (9)
  1. NOREPINEPHRINE BITARTRATE [Interacting]
     Route: 041
  2. AMPICILLIN AND SULBACTAM [Interacting]
     Route: 042
  3. METOPROLOL TARTRATE [Interacting]
     Route: 048
  4. DARBOPOEITIN [Interacting]
     Route: 058
  5. LINEZOLID [Suspect]
     Indication: PNEUMONIA STAPHYLOCOCCAL
     Dosage: 600 MG
     Route: 042
     Dates: start: 20110414, end: 20110421
  6. CLOPIDOGREL [Interacting]
     Route: 048
  7. ASPIRIN [Interacting]
     Route: 048
  8. EPTIFIBATIDE [Interacting]
     Route: 040
  9. TIGECYCLINE [Interacting]
     Route: 042

REACTIONS (2)
  - BLOOD CREATININE INCREASED [None]
  - PLATELET COUNT DECREASED [None]
